FAERS Safety Report 14482337 (Version 1)
Quarter: 2018Q1

REPORT INFORMATION
  Report Type: Spontaneous
  Country: US (occurrence: US)
  Receive Date: 20180202
  Receipt Date: 20180202
  Transmission Date: 20180509
  Serious: Yes (Life-Threatening, Hospitalization, Disabling, Other)
  Sender: FDA-Public Use
  Company Number: None

PATIENT
  Age: 65 Year
  Sex: Male
  Weight: 92.99 kg

DRUGS (5)
  1. DIGOX [Concomitant]
     Active Substance: DIGOXIN
  2. LOSARTAIN [Concomitant]
  3. CARVEDIO [Concomitant]
  4. TAMULSUL [Concomitant]
  5. XARELTO [Suspect]
     Active Substance: RIVAROXABAN
     Indication: ATRIAL FIBRILLATION
     Route: 048
     Dates: start: 20130531, end: 20161002

REACTIONS (2)
  - Haematoma [None]
  - Cerebral haemorrhage [None]
